FAERS Safety Report 9503322 (Version 2)
Quarter: 2013Q3

REPORT INFORMATION
  Report Type: Spontaneous
  Country: CA (occurrence: CA)
  Receive Date: 20130906
  Receipt Date: 20130906
  Transmission Date: 20140515
  Serious: Yes (Hospitalization)
  Sender: FDA-Public Use
  Company Number: CA-JNJFOC-20080905361

PATIENT
  Age: 61 Year
  Sex: Female
  Weight: 78.4 kg

DRUGS (7)
  1. REMICADE [Suspect]
     Indication: RHEUMATOID ARTHRITIS
     Route: 042
     Dates: start: 20050504
  2. M-ESLON [Concomitant]
     Indication: RHEUMATOID ARTHRITIS
     Route: 048
  3. PREDNISONE [Concomitant]
     Indication: RHEUMATOID ARTHRITIS
     Dosage: ALTERNATING DOSE OF 5MG AND 6 MG
     Route: 048
  4. MICARDIS PLUS [Concomitant]
  5. NEXIUM [Concomitant]
  6. METHOTREXATE [Concomitant]
     Indication: RHEUMATOID ARTHRITIS
     Dates: start: 20080212
  7. AMITRIPTYLINE [Concomitant]
     Indication: SEDATION
     Route: 048

REACTIONS (2)
  - Electrolyte imbalance [Recovered/Resolved]
  - Fluid overload [Recovered/Resolved]
